FAERS Safety Report 4777600-2 (Version None)
Quarter: 2005Q3

REPORT INFORMATION
  Report Type: 
  Country: None (occurrence: None)
  Receive Date: 20050921
  Receipt Date: 20050906
  Transmission Date: 20060218
  Serious: Yes (Hospitalization)
  Sender: FDA-Public Use
  Company Number: USA0509107382

PATIENT
  Sex: Female

DRUGS (3)
  1. HUMULIN L [Suspect]
     Indication: DIABETES MELLITUS
     Dosage: 116 U DAY
     Dates: start: 19900101
  2. HUMULIN R [Suspect]
     Indication: BLOOD GLUCOSE INCREASED
     Dates: start: 20030101, end: 20030101
  3. HUMULIN 70/30 [Suspect]
     Indication: DIABETES MELLITUS
     Dates: start: 20040101, end: 20040101

REACTIONS (3)
  - BLOOD GLUCOSE INCREASED [None]
  - CARDIOMEGALY [None]
  - DYSPEPSIA [None]
